FAERS Safety Report 20152062 (Version 2)
Quarter: 2021Q4

REPORT INFORMATION
  Report Type: Spontaneous
  Country: GB (occurrence: GB)
  Receive Date: 20211206
  Receipt Date: 20211220
  Transmission Date: 20220303
  Serious: Yes (Hospitalization, Other)
  Sender: FDA-Public Use
  Company Number: GB-MYLANLABS-2021M1089194

PATIENT
  Age: 56 Year
  Sex: Male

DRUGS (7)
  1. CLOZARIL [Suspect]
     Active Substance: CLOZAPINE
     Indication: Schizophrenia
     Dosage: UNK, BID (200 MG OM AND 275 MG ON)
     Route: 048
     Dates: start: 20110706, end: 20211127
  2. DULOXETINE [Concomitant]
     Active Substance: DULOXETINE
     Indication: Schizophrenia
     Dosage: 120 MILLIGRAM, QD
     Dates: start: 2016
  3. ARIPIPRAZOLE [Concomitant]
     Active Substance: ARIPIPRAZOLE
     Indication: Schizophrenia
     Dosage: 10 MILLIGRAM, MONTHLY
     Route: 048
     Dates: start: 20190325
  4. ARIPIPRAZOLE [Concomitant]
     Active Substance: ARIPIPRAZOLE
     Dosage: 15 MILLIGRAM, MONTHLY
     Route: 048
     Dates: start: 20211203
  5. ZOPICLONE [Concomitant]
     Active Substance: ZOPICLONE
     Indication: Insomnia
     Dosage: 3.75 MILLIGRAM, QD
     Route: 048
     Dates: start: 20160616
  6. METFORMIN [Concomitant]
     Active Substance: METFORMIN HYDROCHLORIDE
     Indication: Type 2 diabetes mellitus
     Dosage: 500 MILLIGRAM, BID
     Route: 048
  7. ATORVASTATIN [Concomitant]
     Active Substance: ATORVASTATIN
     Indication: Blood cholesterol increased
     Dosage: 20 MILLIGRAM, QD
     Route: 048

REACTIONS (4)
  - Aortic valve disease [Recovering/Resolving]
  - Endocarditis [Recovering/Resolving]
  - Lower respiratory tract infection [Unknown]
  - Cardiac failure [Unknown]
